FAERS Safety Report 9239342 (Version 3)
Quarter: 2013Q3

REPORT INFORMATION
  Report Type: Report from Study
  Country: US (occurrence: US)
  Receive Date: 20130418
  Receipt Date: 20130919
  Transmission Date: 20140515
  Serious: Yes (Hospitalization)
  Sender: FDA-Public Use
  Company Number: US-US-EMD SERONO, INC.-7205508

PATIENT
  Age: 54 Year
  Sex: Male
  Weight: 70 kg

DRUGS (6)
  1. REBIF [Suspect]
     Indication: MULTIPLE SCLEROSIS
     Route: 058
     Dates: start: 20080317
  2. PHENYTOIN [Concomitant]
     Indication: CONVULSION
  3. PAROXETINE [Concomitant]
     Indication: DEPRESSION
  4. OXYBUTYN [Concomitant]
     Indication: AUTOMATIC BLADDER
  5. IBUPROFEN [Concomitant]
     Indication: PAIN
  6. VITAMIN D                          /00107901/ [Concomitant]
     Indication: PRODUCT USED FOR UNKNOWN INDICATION

REACTIONS (6)
  - Urinary tract infection [Recovered/Resolved]
  - Influenza [Recovered/Resolved]
  - Balance disorder [Unknown]
  - Diarrhoea [Recovered/Resolved]
  - Fatigue [Not Recovered/Not Resolved]
  - Pain [Not Recovered/Not Resolved]
